FAERS Safety Report 8587476-3 (Version None)
Quarter: 2012Q3

REPORT INFORMATION
  Report Type: 
  Country: None (occurrence: None)
  Receive Date: 20120810
  Receipt Date: 20120806
  Transmission Date: 20120928
  Serious: No
  Sender: FDA-Public Use
  Company Number: US-009507513-1208USA003105

PATIENT

DRUGS (1)
  1. PEG-INTRON [Suspect]
     Indication: HEPATITIS C
     Dosage: 50 MICROGRAM, UNK
     Route: 058
     Dates: start: 20120727

REACTIONS (1)
  - INFLUENZA LIKE ILLNESS [None]
